FAERS Safety Report 25531921 (Version 1)
Quarter: 2025Q3

REPORT INFORMATION
  Report Type: Spontaneous
  Country: EU (occurrence: EU)
  Receive Date: 20250709
  Receipt Date: 20250709
  Transmission Date: 20251021
  Serious: Yes (Other)
  Sender: ALK-ABELLO
  Company Number: EU-ALK-ABELLO A/S-2025AA002042

PATIENT

DRUGS (1)
  1. ACARIZAX [Suspect]
     Active Substance: DERMATOPHAGOIDES FARINAE\DERMATOPHAGOIDES PTERONYSSINUS
     Indication: Rhinitis
     Route: 060
     Dates: start: 202412, end: 20250630

REACTIONS (2)
  - Lymphoma [Unknown]
  - Lymphadenitis [Not Recovered/Not Resolved]

NARRATIVE: CASE EVENT DATE: 20250630
